FAERS Safety Report 7164302-0 (Version None)
Quarter: 2010Q4

REPORT INFORMATION
  Report Type: 
  Country: None (occurrence: None)
  Receive Date: 20101215
  Receipt Date: 20101206
  Transmission Date: 20110411
  Serious: Yes (Hospitalization)
  Sender: FDA-Public Use
  Company Number: PHHY2010US82821

PATIENT
  Sex: Female

DRUGS (1)
  1. TEKTURNA [Suspect]
     Indication: HYPERTENSION
     Dosage: UNK
     Dates: start: 20100225, end: 20100316

REACTIONS (4)
  - FLUSHING [None]
  - HYPERTENSION [None]
  - PARAESTHESIA [None]
  - THROAT TIGHTNESS [None]
